FAERS Safety Report 8154136 (Version 5)
Quarter: 2012Q4

REPORT INFORMATION
  Report Type: Report from Study
  Country: JP (occurrence: JP)
  Receive Date: 20110923
  Receipt Date: 20120910
  Transmission Date: 20130627
  Serious: Yes (Hospitalization)
  Sender: FDA-Public Use
  Company Number: JP-EISAI INC-E7389-01524-SPO-JP

PATIENT
  Age: 52 Year
  Sex: Female
  Weight: 64 kg

DRUGS (18)
  1. HALAVEN [Suspect]
     Indication: BREAST CANCER RECURRENT
     Route: 041
     Dates: start: 20110805, end: 20111014
  2. HALAVEN [Suspect]
     Indication: METASTASES TO LUNG
     Route: 041
     Dates: start: 20111028
  3. DECADRON [Concomitant]
     Dates: end: 20110906
  4. JANUVIA [Concomitant]
     Route: 048
  5. METGLUCO [Concomitant]
     Route: 048
  6. LIPIDIL [Concomitant]
     Indication: PROPHYLAXIS
     Route: 048
  7. LOXONIN [Concomitant]
     Route: 048
  8. OXYCONTIN [Concomitant]
     Route: 048
  9. OXYNORM [Concomitant]
     Route: 048
  10. HALCION [Concomitant]
     Route: 048
  11. SELBEX [Concomitant]
     Indication: PROPHYLAXIS
     Route: 048
  12. AMARYL [Concomitant]
     Route: 048
  13. ALOSENN [Concomitant]
     Indication: PROPHYLAXIS
     Route: 048
  14. STARSIS [Concomitant]
     Indication: PROPHYLAXIS
     Route: 048
  15. LANTUS [Concomitant]
     Route: 042
  16. AMOBAN [Concomitant]
     Route: 048
  17. GASTER [Concomitant]
     Indication: PROPHYLAXIS
     Route: 048
  18. CIPROXAN [Concomitant]
     Indication: PROPHYLAXIS
     Route: 048

REACTIONS (4)
  - Gait disturbance [Recovered/Resolved]
  - Diabetes mellitus [Recovering/Resolving]
  - Fall [None]
  - Asthenia [None]
